FAERS Safety Report 13993976 (Version 2)
Quarter: 2017Q4

REPORT INFORMATION
  Report Type: Spontaneous
  Country: US (occurrence: US)
  Receive Date: 20170920
  Receipt Date: 20171003
  Transmission Date: 20180321
  Serious: Yes (Other)
  Sender: FDA-Public Use
  Company Number: US-TEVA-808738USA

PATIENT
  Sex: Male

DRUGS (4)
  1. PROPAFENONE. [Suspect]
     Active Substance: PROPAFENONE
     Indication: BLOOD PRESSURE ABNORMAL
  2. PROPAFENONE. [Suspect]
     Active Substance: PROPAFENONE
     Indication: HEART RATE IRREGULAR
     Route: 065
     Dates: start: 2012
  3. CLOPIDOGREL [Suspect]
     Active Substance: CLOPIDOGREL BISULFATE
     Route: 065
  4. METOPROLOL. [Suspect]
     Active Substance: METOPROLOL
     Route: 065

REACTIONS (6)
  - Hypertension [Recovered/Resolved]
  - Dizziness [Recovered/Resolved]
  - Flushing [Not Recovered/Not Resolved]
  - Gout [Recovered/Resolved]
  - Ligament rupture [Unknown]
  - Arthralgia [Unknown]
